FAERS Safety Report 6009690-3 (Version None)
Quarter: 2008Q4

REPORT INFORMATION
  Report Type: 
  Country: None (occurrence: None)
  Receive Date: 20081216
  Receipt Date: 20081204
  Transmission Date: 20090506
  Serious: Yes (Other)
  Sender: FDA-Public Use
  Company Number: 2008AP003036

PATIENT
  Age: 82 Year
  Sex: Female
  Weight: 53.0709 kg

DRUGS (16)
  1. TRAMADOL HYDROCHLORIDE [Suspect]
     Indication: PAIN
     Dosage: 50 MG, TID, PO 100 MG, TID; PO, 100 MG, QD; PO
     Route: 048
     Dates: end: 20081101
  2. TRAMADOL HYDROCHLORIDE [Suspect]
     Indication: SPINAL COLUMN STENOSIS
     Dosage: 50 MG, TID, PO 100 MG, TID; PO, 100 MG, QD; PO
     Route: 048
     Dates: end: 20081101
  3. TRAMADOL HYDROCHLORIDE [Suspect]
     Indication: PAIN
     Dosage: 50 MG, TID, PO 100 MG, TID; PO, 100 MG, QD; PO
     Route: 048
     Dates: start: 20080101
  4. TRAMADOL HYDROCHLORIDE [Suspect]
     Indication: SPINAL COLUMN STENOSIS
     Dosage: 50 MG, TID, PO 100 MG, TID; PO, 100 MG, QD; PO
     Route: 048
     Dates: start: 20080101
  5. TRAMADOL HYDROCHLORIDE [Suspect]
     Indication: PAIN
     Dosage: 50 MG, TID, PO 100 MG, TID; PO, 100 MG, QD; PO
     Route: 048
     Dates: start: 20080612
  6. TRAMADOL HYDROCHLORIDE [Suspect]
     Indication: SPINAL COLUMN STENOSIS
     Dosage: 50 MG, TID, PO 100 MG, TID; PO, 100 MG, QD; PO
     Route: 048
     Dates: start: 20080612
  7. CYMBALTA [Suspect]
     Dates: start: 20080401, end: 20080901
  8. TRAMADOL HYDROCHLORIDE [Suspect]
     Indication: PAIN
     Dosage: 50 MG;TID;PO
     Route: 048
     Dates: start: 20080214
  9. TRAMADOL HYDROCHLORIDE [Suspect]
     Indication: SPINAL COLUMN STENOSIS
     Dosage: 50 MG;TID;PO
     Route: 048
     Dates: start: 20080214
  10. ACETYLSALICYLIC ACID [Concomitant]
  11. NIFEDIPINE [Concomitant]
  12. ATORVASTATIN CALCIUM [Concomitant]
  13. CALCIUM [Concomitant]
  14. CENTRUM [Concomitant]
  15. CELECOXIB [Concomitant]
  16. METOPROLOL TARTRATE [Concomitant]

REACTIONS (3)
  - HALLUCINATION, AUDITORY [None]
  - HEARING IMPAIRED [None]
  - THERAPEUTIC RESPONSE DECREASED [None]
